FAERS Safety Report 8310319-X (Version None)
Quarter: 2012Q2

REPORT INFORMATION
  Report Type: 
  Country: None (occurrence: None)
  Receive Date: 20120425
  Receipt Date: 20120420
  Transmission Date: 20120825
  Serious: Yes (Hospitalization)
  Sender: FDA-Public Use
  Company Number: PHHO2011DE05111

PATIENT
  Sex: Male
  Weight: 76 kg

DRUGS (5)
  1. PREDNISOLONE [Suspect]
     Indication: LIVER TRANSPLANT
     Dosage: 15 MG, QD
     Dates: start: 20091223, end: 20100304
  2. TACROLIMUS [Suspect]
     Indication: LIVER TRANSPLANT
     Dosage: 8 MG, BID
     Route: 048
     Dates: start: 20091212
  3. PREDNISOLONE [Suspect]
     Dosage: 5 MG, QD
     Dates: start: 20110405
  4. PREDNISONE [Concomitant]
     Indication: IMMUNOSUPPRESSION
     Dosage: UNK
     Dates: start: 20100305
  5. TACROLIMUS [Suspect]
     Dosage: 6.5 MG, BID
     Route: 048
     Dates: start: 20100429

REACTIONS (2)
  - COMPRESSION FRACTURE [None]
  - OSTEOPOROSIS [None]
